FAERS Safety Report 10777590 (Version 3)
Quarter: 2015Q4

REPORT INFORMATION
  Report Type: Spontaneous
  Country: US (occurrence: US)
  Receive Date: 20150209
  Receipt Date: 20151217
  Transmission Date: 20160304
  Serious: Yes (Life-Threatening, Other)
  Sender: FDA-Public Use
  Company Number: US-ELI_LILLY_AND_COMPANY-US201501010506

PATIENT
  Age: 65 Year
  Sex: Male

DRUGS (14)
  1. XANAX [Concomitant]
     Active Substance: ALPRAZOLAM
  2. NITROGLYCERIN. [Concomitant]
     Active Substance: NITROGLYCERIN
  3. AMBIEN [Concomitant]
     Active Substance: ZOLPIDEM TARTRATE
  4. ACETAMINOPHEN. [Concomitant]
     Active Substance: ACETAMINOPHEN
  5. ANDROGEL [Suspect]
     Active Substance: TESTOSTERONE
     Indication: HORMONE REPLACEMENT THERAPY
     Dosage: UNK, UNKNOWN
     Route: 061
     Dates: start: 20111105, end: 20120523
  6. COLCHICINE. [Concomitant]
     Active Substance: COLCHICINE
  7. PROTONIX [Concomitant]
     Active Substance: PANTOPRAZOLE SODIUM
  8. SIMVASTATINE [Concomitant]
     Active Substance: SIMVASTATIN
  9. TYLENOL [Concomitant]
     Active Substance: ACETAMINOPHEN
  10. AXIRON [Suspect]
     Active Substance: TESTOSTERONE
     Indication: HORMONE REPLACEMENT THERAPY
     Dosage: UNK, UNKNOWN
     Route: 061
     Dates: start: 20111001, end: 20121230
  11. LOSARTAN. [Concomitant]
     Active Substance: LOSARTAN
  12. OMEGA 3                            /01334101/ [Concomitant]
     Active Substance: OMEGA-3 FATTY ACIDS
  13. CALCIUM [Concomitant]
     Active Substance: CALCIUM
  14. LIPITOR [Concomitant]
     Active Substance: ATORVASTATIN CALCIUM

REACTIONS (4)
  - Pulmonary embolism [Not Recovered/Not Resolved]
  - Ventricular fibrillation [Not Recovered/Not Resolved]
  - Acute myocardial infarction [Not Recovered/Not Resolved]
  - Cardiac arrest [Not Recovered/Not Resolved]

NARRATIVE: CASE EVENT DATE: 20120209
